FAERS Safety Report 9393621 (Version 2)
Quarter: 2014Q1

REPORT INFORMATION
  Report Type: Spontaneous
  Country: US (occurrence: US)
  Receive Date: 20130710
  Receipt Date: 20140321
  Transmission Date: 20141002
  Serious: Yes (Death, Hospitalization)
  Sender: FDA-Public Use
  Company Number: US-BAYER-2013-081398

PATIENT
  Age: 75 Year
  Sex: Male
  Weight: 106.6 kg

DRUGS (13)
  1. XARELTO [Suspect]
     Indication: CEREBROVASCULAR ACCIDENT PROPHYLAXIS
     Dosage: 20 MG, QD
     Route: 048
     Dates: start: 20130531
  2. XARELTO [Interacting]
     Indication: ATRIAL FIBRILLATION
  3. XARELTO [Interacting]
     Indication: THROMBOSIS PROPHYLAXIS
  4. ASPIRIN [Interacting]
     Indication: ANTIPLATELET THERAPY
     Dosage: 81 MG, QD
     Route: 065
     Dates: start: 20130530
  5. LASIX [Concomitant]
     Dosage: 80 MG, UNK
     Route: 065
     Dates: start: 20130601, end: 20130608
  6. CARDIZEM [Concomitant]
     Dosage: UNK
     Route: 065
  7. ACCUPRIL [Concomitant]
     Dosage: 20 MG, UNK
     Route: 065
     Dates: start: 2011, end: 20130608
  8. METFORMIN [Concomitant]
     Dosage: UNK
     Route: 065
  9. POTASSIUM CHLORIDE [Concomitant]
     Dosage: UNK
     Route: 065
  10. ALDACTONE [SPIRONOLACTONE] [Concomitant]
     Dosage: 25 MG, UNK
     Route: 065
     Dates: start: 20130517
  11. LIPITOR [Concomitant]
     Dosage: UNK
     Route: 065
  12. GLYBURIDE [Concomitant]
     Dosage: UNK
     Route: 065
  13. MVI [Concomitant]
     Dosage: UNK
     Route: 065

REACTIONS (5)
  - Cerebral haemorrhage [Fatal]
  - Haemorrhagic stroke [Fatal]
  - Renal failure acute [Unknown]
  - Fall [Unknown]
  - Head injury [Unknown]
